FAERS Safety Report 5936809-2 (Version None)
Quarter: 2008Q4

REPORT INFORMATION
  Report Type: 
  Country: None (occurrence: None)
  Receive Date: 20081029
  Receipt Date: 20081016
  Transmission Date: 20090506
  Serious: Yes (Other)
  Sender: FDA-Public Use
  Company Number: 230793K08USA

PATIENT
  Age: 44 Year
  Sex: Female

DRUGS (1)
  1. REBIF [Suspect]
     Indication: MULTIPLE SCLEROSIS
     Dosage: 44 MCG, 2 IN1 WEEKS,  SUBCUTANEOUS
     Route: 058
     Dates: start: 20070425

REACTIONS (2)
  - BLOOD TEST ABNORMAL [None]
  - RENAL FAILURE [None]
